FAERS Safety Report 23940030 (Version 7)
Quarter: 2024Q4

REPORT INFORMATION
  Report Type: Report from Study
  Country: HK (occurrence: HK)
  Receive Date: 20240605
  Receipt Date: 20241206
  Transmission Date: 20250114
  Serious: Yes (Hospitalization)
  Sender: SANOFI AVENTIS
  Company Number: HK-SA-SAC20240603000795

PATIENT
  Age: 69 Year
  Sex: Male
  Weight: 83 kg

DRUGS (9)
  1. ISATUXIMAB [Suspect]
     Active Substance: ISATUXIMAB
     Indication: Plasma cell myeloma refractory
     Dosage: 800 MG, 1X
     Dates: start: 20240430, end: 20240430
  2. ISATUXIMAB [Suspect]
     Active Substance: ISATUXIMAB
     Dosage: 800 MG, 1X
     Dates: start: 20240630, end: 20240630
  3. DEXAMETHASONE [Suspect]
     Active Substance: DEXAMETHASONE
     Indication: Plasma cell myeloma refractory
     Dosage: 10 MG, BIW
     Dates: start: 20240430, end: 20240527
  4. DEXAMETHASONE [Suspect]
     Active Substance: DEXAMETHASONE
     Dosage: 10 MG, BIW
     Dates: start: 20240629, end: 20240703
  5. CARFILZOMIB [Suspect]
     Active Substance: CARFILZOMIB
     Indication: Plasma cell myeloma refractory
     Dosage: 60 MG, QW
     Dates: start: 20240430, end: 20240430
  6. CARFILZOMIB [Suspect]
     Active Substance: CARFILZOMIB
     Dosage: 30 MG, QD
     Dates: start: 20240503, end: 20240504
  7. CLOTRIMAZOLE [Concomitant]
     Active Substance: CLOTRIMAZOLE
     Indication: Dermatitis diaper
     Dosage: UNK
  8. ACYCLOVIR [Concomitant]
     Active Substance: ACYCLOVIR
     Indication: Prophylaxis
     Dosage: UNK
     Dates: start: 2021
  9. COTRIMOXAZOLE [Concomitant]
     Active Substance: SULFAMETHOXAZOLE\TRIMETHOPRIM
     Indication: Antibiotic prophylaxis
     Dosage: UNK
     Dates: start: 2021

REACTIONS (5)
  - Respiratory tract infection [Recovered/Resolved]
  - Neutropenia [Recovered/Resolved]
  - Hypoxia [Recovered/Resolved]
  - Neutropenia [Recovered/Resolved]
  - Pyrexia [Recovered/Resolved]

NARRATIVE: CASE EVENT DATE: 20240515
